FAERS Safety Report 6954260-3 (Version None)
Quarter: 2010Q3

REPORT INFORMATION
  Report Type: 
  Country: None (occurrence: None)
  Receive Date: 20100829
  Receipt Date: 20100709
  Transmission Date: 20110219
  Serious: No
  Sender: FDA-Public Use
  Company Number: US-ABBOTT-10P-163-0657053-00

PATIENT
  Age: 37 Year
  Sex: Male
  Weight: 90.8 kg

DRUGS (1)
  1. NIASPAN [Suspect]
     Indication: LOW DENSITY LIPOPROTEIN INCREASED
     Dosage: AT HS
     Dates: start: 20100601

REACTIONS (1)
  - SOMNOLENCE [None]
